FAERS Safety Report 12381083 (Version 3)
Quarter: 2016Q2

REPORT INFORMATION
  Report Type: Spontaneous
  Country: JP (occurrence: JP)
  Receive Date: 20160518
  Receipt Date: 20160628
  Transmission Date: 20160815
  Serious: Yes (Death)
  Sender: FDA-Public Use
  Company Number: JP-ELI_LILLY_AND_COMPANY-JP201605004543

PATIENT
  Age: 80 Year
  Sex: Male

DRUGS (6)
  1. OPSO [Concomitant]
     Active Substance: MORPHINE HYDROCHLORIDE
     Indication: HERPES VIRUS INFECTION
  2. MS CONTIN [Concomitant]
     Active Substance: MORPHINE SULFATE
     Indication: HERPES VIRUS INFECTION
  3. ADCIRCA [Suspect]
     Active Substance: TADALAFIL
     Indication: PRODUCT USED FOR UNKNOWN INDICATION
     Dosage: UNK
     Route: 048
  4. MS CONTIN [Concomitant]
     Active Substance: MORPHINE SULFATE
     Indication: HERPES ZOSTER
  5. DUROTEP [Concomitant]
     Active Substance: FENTANYL
     Indication: THERAPY CESSATION
     Dosage: UNK
     Dates: start: 20160427, end: 20160504
  6. OPSO [Concomitant]
     Active Substance: MORPHINE HYDROCHLORIDE
     Indication: HERPES ZOSTER

REACTIONS (1)
  - Idiopathic pulmonary fibrosis [Fatal]
